FAERS Safety Report 5565829-5 (Version None)
Quarter: 2007Q4

REPORT INFORMATION
  Report Type: 
  Country: None (occurrence: None)
  Receive Date: 20071213
  Receipt Date: 20071130
  Transmission Date: 20080405
  Serious: Yes (Death, Other)
  Sender: FDA-Public Use
  Company Number: 2007-04016

PATIENT
  Age: 70 Year
  Sex: Female

DRUGS (2)
  1. VELCADE [Suspect]
     Indication: MULTIPLE MYELOMA
     Dosage: 0.70 MG/M2
     Dates: end: 20050101
  2. VELCADE [Suspect]
     Indication: MULTIPLE MYELOMA
     Dosage: 0.70 MG/M2
     Dates: start: 20070924, end: 20071105

REACTIONS (3)
  - CEREBRAL HAEMORRHAGE [None]
  - ENCEPHALITIS HERPES [None]
  - NEUROPATHY PERIPHERAL [None]
